FAERS Safety Report 13902979 (Version 3)
Quarter: 2018Q4

REPORT INFORMATION
  Report Type: Spontaneous
  Country: US (occurrence: US)
  Receive Date: 20170824
  Receipt Date: 20181122
  Transmission Date: 20190204
  Serious: Yes (Hospitalization, Other)
  Sender: FDA-Public Use
  Company Number: US-CIPLA LTD.-2017US14435

PATIENT

DRUGS (4)
  1. CARBOPLATIN. [Suspect]
     Active Substance: CARBOPLATIN
     Indication: TESTICULAR GERM CELL CANCER METASTATIC
     Dosage: UNK, TWO COURSES OF HIGH-DOSE
     Route: 065
     Dates: start: 201509, end: 201511
  2. ETOPOSIDE. [Suspect]
     Active Substance: ETOPOSIDE
     Indication: TESTICULAR GERM CELL CANCER METASTATIC
     Dosage: UNK, TWO COURSES OF HIGH-DOSE
     Route: 065
     Dates: start: 201509, end: 201511
  3. OXALIPLATIN. [Suspect]
     Active Substance: OXALIPLATIN
     Indication: TESTICULAR GERM CELL CANCER METASTATIC
     Dosage: UNK, THIRDLINE TREATMENT
     Route: 065
     Dates: start: 201601
  4. GEMCITABINE [Suspect]
     Active Substance: GEMCITABINE\GEMCITABINE HYDROCHLORIDE
     Indication: TESTICULAR GERM CELL CANCER METASTATIC
     Dosage: UNK, THIRDLINE TREATMENT
     Route: 065
     Dates: start: 201601

REACTIONS (2)
  - Malignant neoplasm progression [Unknown]
  - Testicular germ cell cancer [Unknown]

NARRATIVE: CASE EVENT DATE: 201601
